FAERS Safety Report 8128023-X (Version None)
Quarter: 2012Q1

REPORT INFORMATION
  Report Type: 
  Country: None (occurrence: None)
  Receive Date: 20120210
  Receipt Date: 20120203
  Transmission Date: 20120608
  Serious: Yes (Other)
  Sender: FDA-Public Use
  Company Number: US-JNJFOC-20120203436

PATIENT
  Age: 50 Year
  Sex: Female
  Weight: 62.6 kg

DRUGS (6)
  1. FIORICET [Concomitant]
     Indication: MIGRAINE
     Dosage: 30 PILLS PER MONTH WHEN NEEDED FOR FIVE YEARS
     Route: 065
     Dates: start: 20070101
  2. BENADRYL [Suspect]
     Indication: SLEEP DISORDER THERAPY
     Dosage: FOR AROUND FIVE YEARS
     Route: 048
  3. UNKNOWN ALLERGY SHOTS [Concomitant]
     Indication: MULTIPLE ALLERGIES
     Dosage: TWO SHOTS A MONTH FOR 30 YEARS
     Route: 050
     Dates: start: 19820101
  4. TRAVATAN [Concomitant]
     Indication: PRODUCT USED FOR UNKNOWN INDICATION
     Route: 065
  5. CLARITIN [Concomitant]
     Indication: MULTIPLE ALLERGIES
     Dosage: ONE PILL, FOR FIVE YEARS
     Route: 065
     Dates: start: 20070101
  6. BENADRYL [Suspect]
     Route: 048

REACTIONS (2)
  - INTRAOCULAR PRESSURE INCREASED [None]
  - OFF LABEL USE [None]
